FAERS Safety Report 14672153 (Version 4)
Quarter: 2022Q4

REPORT INFORMATION
  Report Type: Spontaneous
  Country: US (occurrence: None)
  Receive Date: 20180323
  Receipt Date: 20221004
  Transmission Date: 20230112
  Serious: Yes (Hospitalization, Other)
  Sender: FDA-Public Use
  Company Number: 2018SE34851

PATIENT
  Age: 21090 Day
  Sex: Male
  Weight: 72.6 kg

DRUGS (76)
  1. NEXIUM [Suspect]
     Active Substance: ESOMEPRAZOLE MAGNESIUM
     Indication: Gastrooesophageal reflux disease
     Route: 048
     Dates: start: 1990
  2. NEXIUM [Suspect]
     Active Substance: ESOMEPRAZOLE MAGNESIUM
     Indication: Gastrooesophageal reflux disease
     Route: 048
     Dates: start: 20071213
  3. NEXIUM [Suspect]
     Active Substance: ESOMEPRAZOLE MAGNESIUM
     Indication: Gastrooesophageal reflux disease
     Route: 048
     Dates: start: 20071114, end: 201304
  4. NEXIUM [Suspect]
     Active Substance: ESOMEPRAZOLE MAGNESIUM
     Indication: Gastrooesophageal reflux disease
     Route: 048
     Dates: start: 20130411
  5. PRILOSEC [Suspect]
     Active Substance: OMEPRAZOLE MAGNESIUM
     Indication: Gastrooesophageal reflux disease
     Route: 048
     Dates: start: 200711
  6. PREVACID [Suspect]
     Active Substance: LANSOPRAZOLE
     Indication: Gastrooesophageal reflux disease
     Route: 065
     Dates: start: 1990
  7. PREVACID [Suspect]
     Active Substance: LANSOPRAZOLE
     Indication: Gastrooesophageal reflux disease
     Route: 065
     Dates: start: 20140428
  8. PREVACID [Suspect]
     Active Substance: LANSOPRAZOLE
     Indication: Gastrooesophageal reflux disease
     Dosage: GENERIC
     Route: 065
     Dates: start: 20141015
  9. PREVACID [Suspect]
     Active Substance: LANSOPRAZOLE
     Indication: Gastrooesophageal reflux disease
     Dosage: GENERIC
     Route: 065
     Dates: start: 20150530
  10. PROTONIX [Suspect]
     Active Substance: PANTOPRAZOLE SODIUM
     Indication: Gastrooesophageal reflux disease
     Dosage: GENERIC
     Route: 065
     Dates: start: 201305
  11. PROTONIX [Suspect]
     Active Substance: PANTOPRAZOLE SODIUM
     Indication: Gastrooesophageal reflux disease
     Dosage: GENERIC
     Route: 065
     Dates: start: 20130508
  12. PROTONIX [Suspect]
     Active Substance: PANTOPRAZOLE SODIUM
     Indication: Gastrooesophageal reflux disease
     Route: 065
     Dates: start: 20151003
  13. CRESTOR [Concomitant]
     Active Substance: ROSUVASTATIN CALCIUM
     Indication: Blood cholesterol increased
     Route: 048
     Dates: start: 2012
  14. CALCIUM CITRATE [Concomitant]
     Active Substance: CALCIUM CITRATE
     Indication: Osteoporosis
     Route: 065
  15. VITAMIN D3 [Concomitant]
     Active Substance: CHOLECALCIFEROL
     Indication: Osteoporosis
     Route: 065
  16. IRON [Concomitant]
     Active Substance: IRON
     Indication: Iron deficiency
     Route: 065
  17. PREDNISONE [Concomitant]
     Active Substance: PREDNISONE
     Indication: Iron deficiency
     Route: 048
     Dates: start: 20121220
  18. ZANAFLEX [Concomitant]
     Active Substance: TIZANIDINE HYDROCHLORIDE
     Indication: Iron deficiency
     Route: 048
     Dates: start: 20060130
  19. SINGULAIR [Concomitant]
     Active Substance: MONTELUKAST SODIUM
     Route: 048
     Dates: start: 20140428
  20. SINGULAIR [Concomitant]
     Active Substance: MONTELUKAST SODIUM
     Route: 065
     Dates: start: 20180520
  21. LABETALOL [Concomitant]
     Active Substance: LABETALOL\LABETALOL HYDROCHLORIDE
     Indication: Iron deficiency
     Route: 065
     Dates: start: 2012
  22. CLONIDINE [Concomitant]
     Active Substance: CLONIDINE
     Indication: Iron deficiency
     Route: 065
     Dates: start: 2012
  23. TESTOSTERONE [Concomitant]
     Active Substance: TESTOSTERONE
     Indication: Blood testosterone decreased
     Route: 065
     Dates: start: 2015
  24. FLOMAX [Concomitant]
     Active Substance: TAMSULOSIN HYDROCHLORIDE
     Indication: Benign neoplasm of prostate
     Route: 065
     Dates: start: 2012
  25. FLOMAX [Concomitant]
     Active Substance: TAMSULOSIN HYDROCHLORIDE
     Indication: Benign neoplasm of prostate
     Route: 048
     Dates: start: 20150601
  26. ISOSORBIDE [Concomitant]
     Active Substance: ISOSORBIDE
     Indication: Muscle spasms
     Route: 065
     Dates: start: 2015
  27. METFORMIN [Concomitant]
     Active Substance: METFORMIN HYDROCHLORIDE
     Indication: Diabetes mellitus
     Route: 065
     Dates: start: 2017
  28. MAGNESIUM OXIDE [Concomitant]
     Active Substance: MAGNESIUM OXIDE
     Indication: Magnesium deficiency
     Route: 065
     Dates: start: 2012
  29. MAGNESIUM OXIDE [Concomitant]
     Active Substance: MAGNESIUM OXIDE
     Indication: Magnesium deficiency
     Route: 048
     Dates: start: 20150126
  30. VITAMIN B12 [Concomitant]
     Active Substance: CYANOCOBALAMIN
     Indication: Arthritis
     Route: 065
  31. FOSAMAX [Concomitant]
     Active Substance: ALENDRONATE SODIUM
     Route: 048
     Dates: start: 20121220
  32. TEKTURNA [Concomitant]
     Active Substance: ALISKIREN HEMIFUMARATE
     Route: 048
     Dates: start: 20110818
  33. ATENOLOL [Concomitant]
     Active Substance: ATENOLOL
     Route: 048
     Dates: start: 20060130
  34. BENAZEPRIL [Concomitant]
     Active Substance: BENAZEPRIL HYDROCHLORIDE
     Route: 048
     Dates: start: 20101101
  35. FENOFIBRATE [Concomitant]
     Active Substance: FENOFIBRATE
     Route: 048
     Dates: start: 20121220
  36. NEURONTIN [Concomitant]
     Active Substance: GABAPENTIN
     Route: 048
     Dates: start: 20110919
  37. NEURONTIN [Concomitant]
     Active Substance: GABAPENTIN
     Route: 048
     Dates: start: 20120910, end: 20121012
  38. HYDROCHLOROTHIAZIDE [Concomitant]
     Active Substance: HYDROCHLOROTHIAZIDE
     Route: 048
     Dates: start: 20121220
  39. OXYCODONE [Concomitant]
     Active Substance: OXYCODONE
     Route: 065
     Dates: start: 20130313, end: 20130320
  40. ACETAMINOPHEN [Concomitant]
     Active Substance: ACETAMINOPHEN
     Route: 065
     Dates: start: 20130313, end: 20130320
  41. NORVASC [Concomitant]
     Active Substance: AMLODIPINE BESYLATE
     Route: 048
     Dates: start: 20130102, end: 20150407
  42. ASPIRIN [Concomitant]
     Active Substance: ASPIRIN
     Route: 048
     Dates: start: 20130515
  43. LEVALBUTEROL [Concomitant]
     Active Substance: LEVALBUTEROL
     Route: 055
  44. LOSARTAN POTASSIUM [Concomitant]
     Active Substance: LOSARTAN POTASSIUM
     Route: 048
     Dates: start: 20130125
  45. AMITIZA [Concomitant]
     Active Substance: LUBIPROSTONE
     Route: 048
  46. PROLIA [Concomitant]
     Active Substance: DENOSUMAB
     Route: 048
     Dates: start: 20130401, end: 20140903
  47. DIFLUNISAL [Concomitant]
     Active Substance: DIFLUNISAL
     Route: 048
     Dates: start: 20050830
  48. DOPAMINE [Concomitant]
     Active Substance: DOPAMINE HYDROCHLORIDE
     Route: 065
  49. DOXAZOSIN [Concomitant]
     Active Substance: DOXAZOSIN MESYLATE
     Route: 065
     Dates: start: 20051017
  50. MOBIC [Concomitant]
     Active Substance: MELOXICAM
     Route: 065
     Dates: start: 20051205
  51. FUROSEMIDE [Concomitant]
     Active Substance: FUROSEMIDE
     Route: 065
     Dates: start: 20060308
  52. DILTIAZEM [Concomitant]
     Active Substance: DILTIAZEM
     Route: 065
     Dates: start: 20060403
  53. LEVAQUIN [Concomitant]
     Active Substance: LEVOFLOXACIN
     Route: 065
     Dates: start: 20081105
  54. COLCHICINE [Concomitant]
     Active Substance: COLCHICINE
     Route: 065
     Dates: start: 20091111
  55. SUCRALFATE [Concomitant]
     Active Substance: SUCRALFATE
     Route: 065
     Dates: start: 20130814
  56. LOTREL [Concomitant]
     Active Substance: AMLODIPINE BESYLATE\BENAZEPRIL HYDROCHLORIDE
  57. CLARITHROMYCIN [Concomitant]
     Active Substance: CLARITHROMYCIN
  58. AMOXICILLIN [Concomitant]
     Active Substance: AMOXICILLIN
  59. TIZANIDINE [Concomitant]
     Active Substance: TIZANIDINE
  60. NABUMETONE [Concomitant]
     Active Substance: NABUMETONE
  61. METHYLPREDNISOLONE [Concomitant]
     Active Substance: METHYLPREDNISOLONE
  62. KETOPROFEN [Concomitant]
     Active Substance: KETOPROFEN
  63. ALLOPURINOL [Concomitant]
     Active Substance: ALLOPURINOL
  64. VALTREX [Concomitant]
     Active Substance: VALACYCLOVIR HYDROCHLORIDE
  65. FLUTICASONE [Concomitant]
     Active Substance: FLUTICASONE
  66. TAMIFLU [Concomitant]
     Active Substance: OSELTAMIVIR PHOSPHATE
  67. MISOPROSTOL [Concomitant]
     Active Substance: MISOPROSTOL
  68. HYDRALAZINE [Concomitant]
     Active Substance: HYDRALAZINE HYDROCHLORIDE
  69. CHLORZOXAZONE [Concomitant]
     Active Substance: CHLORZOXAZONE
  70. SPIRONOLACTONE [Concomitant]
     Active Substance: SPIRONOLACTONE
  71. FLUOROMETHOLONE [Concomitant]
     Active Substance: FLUOROMETHOLONE
  72. TOPIRAMATE [Concomitant]
     Active Substance: TOPIRAMATE
  73. MOXIFLOXACIN [Concomitant]
     Active Substance: MOXIFLOXACIN
  74. ACETAMINOPHEN\HYDROCODONE BITARTRATE [Concomitant]
     Active Substance: ACETAMINOPHEN\HYDROCODONE BITARTRATE
  75. BUTALBITAL [Concomitant]
     Active Substance: BUTALBITAL
  76. BUPAP [Concomitant]
     Active Substance: ACETAMINOPHEN\BUTALBITAL

REACTIONS (5)
  - Acute kidney injury [Not Recovered/Not Resolved]
  - Chronic kidney disease [Not Recovered/Not Resolved]
  - Renal failure [Unknown]
  - Renal tubular necrosis [Unknown]
  - Metabolic acidosis [Unknown]

NARRATIVE: CASE EVENT DATE: 20121220
